FAERS Safety Report 25841440 (Version 2)
Quarter: 2025Q4

REPORT INFORMATION
  Report Type: Spontaneous
  Country: US (occurrence: US)
  Receive Date: 20250924
  Receipt Date: 20251224
  Transmission Date: 20260118
  Serious: No
  Sender: MADRIGAL PHARMACEUTICALS
  Company Number: US-MADRIGAL PHARMACEUTICALS, INC-2025REZ3744

PATIENT

DRUGS (5)
  1. REZDIFFRA [Suspect]
     Active Substance: RESMETIROM
     Indication: Metabolic dysfunction-associated steatohepatitis
     Dosage: 80 MILLIGRAM, QD
     Route: 048
     Dates: start: 20250324
  2. REZDIFFRA [Suspect]
     Active Substance: RESMETIROM
     Dosage: UNK
     Route: 048
     Dates: end: 2025
  3. PREDNISONE [Concomitant]
     Active Substance: PREDNISONE
     Indication: Arthralgia
     Dosage: 5 MILLIGRAM, 10 DAY REGIMEN
  4. PREDNISONE [Concomitant]
     Active Substance: PREDNISONE
     Indication: Pain in extremity
  5. PREDNISONE [Concomitant]
     Active Substance: PREDNISONE
     Indication: Muscular weakness

REACTIONS (5)
  - Weight increased [Unknown]
  - Diarrhoea [Not Recovered/Not Resolved]
  - Abdominal pain upper [Recovered/Resolved]
  - Abdominal pain [Recovered/Resolved]
  - Nausea [Unknown]

NARRATIVE: CASE EVENT DATE: 20250101
